FAERS Safety Report 15386275 (Version 1)
Quarter: 2018Q3

REPORT INFORMATION
  Report Type: Spontaneous
  Country: US (occurrence: US)
  Receive Date: 20180907
  Receipt Date: 20180907
  Transmission Date: 20181010
  Serious: Yes (Death)
  Sender: FDA-Public Use
  Company Number: None

PATIENT
  Age: 72 Year
  Sex: Female
  Weight: 55.8 kg

DRUGS (7)
  1. LEFLUNOMIDE. [Concomitant]
     Active Substance: LEFLUNOMIDE
  2. VITAMIN D2 [Concomitant]
     Active Substance: ERGOCALCIFEROL
  3. TOPROL XL [Concomitant]
     Active Substance: METOPROLOL SUCCINATE
  4. FOLIC ACID. [Concomitant]
     Active Substance: FOLIC ACID
  5. FEMARA [Concomitant]
     Active Substance: LETROZOLE
  6. XGEVA [Concomitant]
     Active Substance: DENOSUMAB
  7. IBRANCE [Suspect]
     Active Substance: PALBOCICLIB
     Indication: BREAST CANCER
     Route: 048
     Dates: start: 20180424, end: 20180822

REACTIONS (1)
  - Death [None]

NARRATIVE: CASE EVENT DATE: 20180822
